FAERS Safety Report 8674685 (Version 3)
Quarter: 2012Q4

REPORT INFORMATION
  Report Type: Report from Study
  Country: US (occurrence: US)
  Receive Date: 20120720
  Receipt Date: 20120917
  Transmission Date: 20130627
  Serious: Yes (Other)
  Sender: FDA-Public Use
  Company Number: US-ABBOTT-12P-163-0956591-00

PATIENT
  Age: 72 None
  Sex: Female

DRUGS (6)
  1. SYNTHROID [Suspect]
     Indication: HYPOTHYROIDISM
     Dosage: Not reported dose
     Dates: start: 1987
  2. SYNTHROID [Suspect]
     Dosage: ^certain pills^ to make 112.5 mcg daily
  3. SYNTHROID [Suspect]
     Dosage: 1-100mcg tablet + 1/2-25 mcg tablet
  4. SYNTHROID [Suspect]
     Dosage: ^certain pills^ to make 112.5 mcg daily
  5. SYNTHROID [Suspect]
     Dosage: 1-100mcg tablet + 1/2-25 mcg tablet
  6. SYNTHROID [Suspect]
     Dosage: ^certain pills^ to make 112.5 mcg daily

REACTIONS (9)
  - Breast cancer [Unknown]
  - Constipation [Recovered/Resolved]
  - Fatigue [Recovered/Resolved]
  - Feeling cold [Recovered/Resolved]
  - Fluid retention [Unknown]
  - Anxiety [Unknown]
  - Irritability [Recovered/Resolved]
  - Hypothyroidism [Unknown]
  - Product lot number issue [Unknown]
